FAERS Safety Report 15473492 (Version 1)
Quarter: 2018Q4

REPORT INFORMATION
  Report Type: Spontaneous
  Country: DE (occurrence: DE)
  Receive Date: 20181008
  Receipt Date: 20181008
  Transmission Date: 20190205
  Serious: Yes (Death, Other)
  Sender: FDA-Public Use
  Company Number: DE-BAYER-2018-182537

PATIENT
  Age: 59 Year
  Sex: Male

DRUGS (2)
  1. REGORAFENIB. [Suspect]
     Active Substance: REGORAFENIB
     Indication: GASTROINTESTINAL STROMAL TUMOUR
     Dosage: UNK
     Dates: start: 201308
  2. SORAFENIB (RAF KINASE INHIBITOR) [Suspect]
     Active Substance: SORAFENIB
     Indication: GASTROINTESTINAL STROMAL TUMOUR
     Dosage: UNK
     Dates: start: 2015

REACTIONS (6)
  - Death [Fatal]
  - Gastrointestinal stromal tumour [None]
  - Gastrointestinal stromal cancer [None]
  - Off label use [None]
  - Hepatic failure [None]
  - Product use in unapproved indication [None]

NARRATIVE: CASE EVENT DATE: 2015
